FAERS Safety Report 5856911-3 (Version None)
Quarter: 2008Q3

REPORT INFORMATION
  Report Type: 
  Country: None (occurrence: None)
  Receive Date: 20080822
  Receipt Date: 20080822
  Transmission Date: 20090109
  Serious: Yes (Other)
  Sender: FDA-Public Use
  Company Number: None

PATIENT
  Age: 49 Year
  Sex: Female

DRUGS (2)
  1. INDERAL LA [Suspect]
     Indication: HYPERTENSION
     Dosage: 80MG ONE QD
     Dates: start: 20080801, end: 20080805
  2. INDERAL LA [Suspect]
     Indication: PALPITATIONS
     Dosage: 80MG ONE QD
     Dates: start: 20080801, end: 20080805

REACTIONS (2)
  - RASH [None]
  - REACTION TO AZO-DYES [None]
